FAERS Safety Report 7795905-8 (Version None)
Quarter: 2011Q4

REPORT INFORMATION
  Report Type: 
  Country: None (occurrence: None)
  Receive Date: 20111004
  Receipt Date: 20111004
  Transmission Date: 20120403
  Serious: Yes (Other)
  Sender: FDA-Public Use
  Company Number: BE-PFIZER INC-2011175234

PATIENT
  Age: 25 Year
  Sex: Male
  Weight: 80.5 kg

DRUGS (5)
  1. LEVOTHYROXINE SODIUM [Concomitant]
     Dosage: 125 UG, 1X/DAY
     Route: 048
     Dates: start: 20100102
  2. SOSTILAR [Suspect]
     Indication: SECRETORY ADENOMA OF PITUITARY
     Dosage: 0.5 MG, 1X/DAY
     Route: 048
     Dates: start: 20050101
  3. SOSTILAR [Suspect]
     Dosage: 1 TABLET DAILY
  4. TESTOSTERONE PHENYL PROPIONATE INJ [Concomitant]
     Dosage: 250 MG, MONTHLY
     Route: 030
     Dates: start: 20100102
  5. SOSTILAR [Suspect]
     Dosage: 1.5 TABLETS DAILY

REACTIONS (1)
  - TOOTH FRACTURE [None]
